FAERS Safety Report 8055564-6 (Version None)
Quarter: 2011Q4

REPORT INFORMATION
  Report Type: 
  Country: None (occurrence: None)
  Receive Date: 20111213
  Receipt Date: 20110819
  Transmission Date: 20120403
  Serious: Yes (Hospitalization)
  Sender: FDA-Public Use
  Company Number: 2011SP039487

PATIENT
  Age: 56 Year
  Sex: Female

DRUGS (4)
  1. LITHIUM [Concomitant]
  2. EFFEXOR [Concomitant]
  3. SAPHRIS [Suspect]
     Indication: BIPOLAR DISORDER
     Dosage: 10 MG;HS;SL
     Route: 060
     Dates: start: 20110801, end: 20110801
  4. KLONOPIN [Concomitant]

REACTIONS (5)
  - BLOOD CREATINE PHOSPHOKINASE [None]
  - WEIGHT INCREASED [None]
  - INAPPROPRIATE SCHEDULE OF DRUG ADMINISTRATION [None]
  - PAIN IN EXTREMITY [None]
  - OEDEMA PERIPHERAL [None]
